FAERS Safety Report 8204561-6 (Version None)
Quarter: 2012Q1

REPORT INFORMATION
  Report Type: 
  Country: None (occurrence: None)
  Receive Date: 20120313
  Receipt Date: 20120308
  Transmission Date: 20120608
  Serious: Yes (Disabling)
  Sender: FDA-Public Use
  Company Number: US-PFIZER INC-2012062925

PATIENT
  Sex: Male

DRUGS (1)
  1. LIPITOR [Suspect]
     Dosage: 20 MG, DAILY
     Route: 048

REACTIONS (3)
  - CARDIAC FAILURE CONGESTIVE [None]
  - RENAL FAILURE [None]
  - DIABETES MELLITUS [None]
